FAERS Safety Report 6766506-5 (Version None)
Quarter: 2010Q2

REPORT INFORMATION
  Report Type: 
  Country: None (occurrence: None)
  Receive Date: 20100611
  Receipt Date: 20100526
  Transmission Date: 20101027
  Serious: Yes (Other)
  Sender: FDA-Public Use
  Company Number: US-BAYER-200921462NA

PATIENT
  Age: 60 Year
  Sex: Male

DRUGS (18)
  1. MAGNEVIST [Suspect]
     Indication: NUCLEAR MAGNETIC RESONANCE IMAGING
     Dosage: TOTAL DAILY DOSE: 15 ML
     Route: 042
     Dates: start: 20060613, end: 20060613
  2. OMNISCAN [Suspect]
     Indication: ANGIOGRAM
     Dosage: TOTAL DAILY DOSE: 40 ML
     Route: 042
     Dates: start: 20060123, end: 20060123
  3. UNSPECIFIED GADOLINIUM CONTRAST BASED AGENT [Suspect]
     Indication: NUCLEAR MAGNETIC RESONANCE IMAGING
     Dates: start: 20060119, end: 20060119
  4. UNSPECIFIED GADOLINIUM CONTRAST BASED AGENT [Suspect]
     Dates: start: 20060415, end: 20060415
  5. METOPROLOL TARTRATE [Concomitant]
     Route: 048
  6. ALLOPURINOL [Concomitant]
  7. DARBEPOETIN ALFA [Concomitant]
     Dosage: 60 ?G/ 0.3ML Q WEEK
     Route: 058
  8. ALBUTEROL [Concomitant]
  9. FORMOTEROL FUMARATE [Concomitant]
     Dosage: INHALATION
  10. NEPHRO-VITE [Concomitant]
  11. LISINOPRIL [Concomitant]
     Route: 048
  12. COUMADIN [Concomitant]
     Route: 048
  13. DILTIAZEM [Concomitant]
     Route: 048
  14. SYNTHROID [Concomitant]
  15. VITAMIN D [Concomitant]
  16. CALCIFEROL [Concomitant]
  17. NITROGLYCERIN [Concomitant]
  18. ARANESP [Concomitant]

REACTIONS (24)
  - DRY SKIN [None]
  - ERYTHEMA [None]
  - GAIT DISTURBANCE [None]
  - HYPOAESTHESIA [None]
  - JOINT CONTRACTURE [None]
  - JOINT RANGE OF MOTION DECREASED [None]
  - MUSCLE ATROPHY [None]
  - MUSCLE FIBROSIS [None]
  - MUSCLE TIGHTNESS [None]
  - MUSCULAR WEAKNESS [None]
  - MUSCULOSKELETAL PAIN [None]
  - MUSCULOSKELETAL STIFFNESS [None]
  - NEPHROGENIC SYSTEMIC FIBROSIS [None]
  - OEDEMA PERIPHERAL [None]
  - PAIN IN EXTREMITY [None]
  - PARAESTHESIA [None]
  - PULMONARY FIBROSIS [None]
  - SKIN DISCOLOURATION [None]
  - SKIN FIBROSIS [None]
  - SKIN HYPERTROPHY [None]
  - SKIN INDURATION [None]
  - SKIN TIGHTNESS [None]
  - SKIN ULCER [None]
  - WOUND SECRETION [None]
